FAERS Safety Report 15811487 (Version 1)
Quarter: 2019Q1

REPORT INFORMATION
  Report Type: Spontaneous
  Country: US (occurrence: US)
  Receive Date: 20190111
  Receipt Date: 20190111
  Transmission Date: 20190417
  Serious: No
  Sender: FDA-Public Use
  Company Number: US-LEXICON PHARMACEUTICALS, INC-18-1606-01599

PATIENT
  Sex: Female

DRUGS (16)
  1. FEXOFENADINE HCL [Concomitant]
     Active Substance: FEXOFENADINE HYDROCHLORIDE
  2. VITAMIN D [Concomitant]
     Active Substance: CHOLECALCIFEROL
  3. BRILINTA [Concomitant]
     Active Substance: TICAGRELOR
  4. FLUTICASONE PROP [Concomitant]
     Active Substance: FLUTICASONE PROPIONATE
  5. TELOTRISTAT ETHYL [Suspect]
     Active Substance: TELOTRISTAT ETHYL
     Indication: CARCINOID TUMOUR OF THE SMALL BOWEL
  6. TELOTRISTAT ETHYL [Suspect]
     Active Substance: TELOTRISTAT ETHYL
     Indication: CARCINOID TUMOUR
     Route: 048
     Dates: start: 20180926
  7. ASPIRIN. [Concomitant]
     Active Substance: ASPIRIN
  8. THIAMINE HCL [Concomitant]
     Active Substance: THIAMINE HYDROCHLORIDE
  9. NITROGLYCERIN. [Concomitant]
     Active Substance: NITROGLYCERIN
  10. MAGNESIUM [Concomitant]
     Active Substance: MAGNESIUM
  11. LEVAQUIN [Concomitant]
     Active Substance: LEVOFLOXACIN
  12. RANEXA [Concomitant]
     Active Substance: RANOLAZINE
  13. VENLAFAXINE CAP [Concomitant]
  14. SANDOSTATIN [Concomitant]
     Active Substance: OCTREOTIDE ACETATE
  15. KLOR-CON [Concomitant]
     Active Substance: POTASSIUM CHLORIDE
  16. POTASSIUM CHLORIDE. [Concomitant]
     Active Substance: POTASSIUM CHLORIDE

REACTIONS (2)
  - Constipation [Recovered/Resolved]
  - Product dose omission [Unknown]
